FAERS Safety Report 5214109-6 (Version None)
Quarter: 2007Q1

REPORT INFORMATION
  Report Type: 
  Country: None (occurrence: None)
  Receive Date: 20070122
  Receipt Date: 20070111
  Transmission Date: 20070707
  Serious: Yes (Other)
  Sender: FDA-Public Use
  Company Number: AU-AVENTIS-200710279GDDC

PATIENT
  Sex: Female

DRUGS (2)
  1. FEXOTABS [Suspect]
     Indication: MASTITIS
     Route: 048
  2. FEXOTABS [Suspect]
     Route: 048

REACTIONS (3)
  - LOSS OF CONSCIOUSNESS [None]
  - OFF LABEL USE [None]
  - OVERDOSE [None]
